FAERS Safety Report 6741284-4 (Version None)
Quarter: 2010Q2

REPORT INFORMATION
  Report Type: 
  Country: None (occurrence: None)
  Receive Date: 20100520
  Receipt Date: 20091013
  Transmission Date: 20101027
  Serious: Yes (Other)
  Sender: FDA-Public Use
  Company Number: 2006147789

PATIENT
  Age: 43 Year
  Sex: Female
  Weight: 61 kg

DRUGS (3)
  1. DEPO-PROVERA [Suspect]
     Indication: CONTRACEPTION
     Dosage: INTRAMUSCULAR
     Route: 030
     Dates: start: 19941101, end: 20050711
  2. TIZANIDINE HCL [Concomitant]
  3. IRON (IRON) [Concomitant]

REACTIONS (4)
  - AMENORRHOEA [None]
  - MENSTRUATION IRREGULAR [None]
  - OSTEOPOROSIS [None]
  - OSTEOPOROTIC FRACTURE [None]
